FAERS Safety Report 5173529-9 (Version None)
Quarter: 2006Q4

REPORT INFORMATION
  Report Type: 
  Country: None (occurrence: None)
  Receive Date: 20061207
  Receipt Date: 20061207
  Transmission Date: 20070319
  Serious: Yes (Hospitalization)
  Sender: FDA-Public Use
  Company Number: None

PATIENT
  Sex: Female
  Weight: 85.3 kg

DRUGS (5)
  1. DOXORUBICIN HYDROCHLORIDE [Suspect]
     Dosage: 150 MG
  2. METHOTREXATE [Suspect]
     Dosage: 30 MG
  3. PEG-L-ASPARAGINASE (K-H) [Suspect]
     Dosage: 5000 MG
  4. THIOGUANINE [Suspect]
     Dosage: 840 MG
  5. VINCRISTINE SULFATE [Suspect]
     Dosage: 6 MG

REACTIONS (25)
  - ACUTE HEPATIC FAILURE [None]
  - AMMONIA INCREASED [None]
  - BLOOD GLUCOSE DECREASED [None]
  - COAGULOPATHY [None]
  - CONFUSIONAL STATE [None]
  - CONVULSION [None]
  - DEPRESSED LEVEL OF CONSCIOUSNESS [None]
  - DISORIENTATION [None]
  - DYSURIA [None]
  - GENERAL PHYSICAL HEALTH DETERIORATION [None]
  - HEPATITIS [None]
  - HYPOTENSION [None]
  - METABOLIC ACIDOSIS [None]
  - NEUTROPENIA [None]
  - PYREXIA [None]
  - RENAL FAILURE ACUTE [None]
  - RESPIRATORY DISTRESS [None]
  - SKIN LESION [None]
  - TACHYCARDIA [None]
  - THROMBOCYTOPENIA [None]
  - ULCER [None]
  - VAGINAL DISCHARGE [None]
  - VAGINAL ULCERATION [None]
  - VISUAL DISTURBANCE [None]
  - VULVAL DISORDER [None]
